FAERS Safety Report 4600104-4 (Version None)
Quarter: 2005Q1

REPORT INFORMATION
  Report Type: 
  Country: None (occurrence: None)
  Receive Date: 20050303
  Receipt Date: 20050221
  Transmission Date: 20050727
  Serious: Yes (Hospitalization)
  Sender: FDA-Public Use
  Company Number: RS005009-J

PATIENT
  Age: 67 Year
  Sex: Female
  Weight: 55 kg

DRUGS (18)
  1. RABEPRAZOLE SODIUM [Suspect]
     Indication: GASTROINTESTINAL DISORDER
     Dosage: 20 MG, 2 IN 1 D, ORAL
     Route: 048
     Dates: start: 20050208, end: 20050215
  2. TAGAMET [Suspect]
     Indication: GASTROINTESTINAL DISORDER
     Dosage: 400 MG, 2 IN 1 D, ORAL
     Route: 048
     Dates: start: 20041227, end: 20050208
  3. URSODIOL [Suspect]
     Indication: HEPATITIS C
     Dosage: 600 MG, 3 IN 1 D, ORAL
     Route: 048
     Dates: start: 20041227
  4. AMINOLEBAN EN (AMINOLEBAN EN) [Suspect]
     Indication: NUTRITIONAL SUPPORT
     Dosage: 100 GM, 2 IN 1 D, ORAL
     Route: 048
     Dates: start: 20041227, end: 20050215
  5. LOXONIN (LOXOPROFEN SODIUM) [Suspect]
     Indication: CANCER PAIN
     Dosage: 180 MG, 3 IN 1 D, ORAL
     Route: 048
     Dates: start: 20050124, end: 20050215
  6. LEVOTHYROXINE SODIUM [Suspect]
     Indication: HYPOTHYROIDISM
     Dosage: 100 MCG, 2 IN 1 D, ORAL
     Route: 048
  7. GEMZAR [Suspect]
     Indication: PANCREATIC CARCINOMA
     Dosage: 1 G X 1 AND 600 MG X 1, 1 IN 1 D
     Dates: start: 20050125, end: 20050125
  8. GEMZAR [Suspect]
     Indication: PANCREATIC CARCINOMA
     Dosage: 1 G X 1 AND 600 MG X 1, 1 IN 1 D
     Dates: start: 20050201, end: 20050201
  9. GEMZAR [Suspect]
     Indication: PANCREATIC CARCINOMA
     Dosage: 1 G X 1 AND 600 MG X 1, 1 IN 1 D
     Dates: start: 20050215, end: 20050215
  10. ZOFRAN ZYDIS (ONDANSETRON HYDROCHLORIDE) [Concomitant]
  11. PURSENNID (SENNA LEAF) [Concomitant]
  12. LEVOFLOXACIN [Concomitant]
  13. LASIX [Concomitant]
  14. VOLTAREN [Concomitant]
  15. NAUZELIN (DOMPERIDONE) [Concomitant]
  16. MARZULENE S (MARZULENE S) [Concomitant]
  17. DECADRON [Concomitant]
  18. PHYSISALZ-PL (SODIUM CHLORIDE) [Concomitant]

REACTIONS (1)
  - RENAL FAILURE ACUTE [None]
